FAERS Safety Report 12060768 (Version 2)
Quarter: 2016Q1

REPORT INFORMATION
  Report Type: Spontaneous
  Country: AT (occurrence: AT)
  Receive Date: 20160210
  Receipt Date: 20160322
  Transmission Date: 20160526
  Serious: Yes (Life-Threatening, Hospitalization)
  Sender: FDA-Public Use
  Company Number: AT-JNJFOC-20160208485

PATIENT
  Age: 79 Year
  Sex: Male

DRUGS (1)
  1. XARELTO [Suspect]
     Active Substance: RIVAROXABAN
     Indication: PRODUCT USED FOR UNKNOWN INDICATION
     Route: 048

REACTIONS (3)
  - Acute hepatic failure [Recovered/Resolved]
  - Renal impairment [Recovered/Resolved]
  - Hepatic function abnormal [Recovered/Resolved]
